FAERS Safety Report 12223002 (Version 1)
Quarter: 2016Q1

REPORT INFORMATION
  Report Type: Spontaneous
  Country: US (occurrence: US)
  Receive Date: 20160330
  Receipt Date: 20160330
  Transmission Date: 20160526
  Serious: No
  Sender: FDA-Public Use
  Company Number: US-PERRIGO-15US011950

PATIENT
  Age: 72 Year
  Sex: Male
  Weight: 126.98 kg

DRUGS (6)
  1. VITAMIN C [Concomitant]
     Active Substance: ASCORBIC ACID
     Indication: SUPPLEMENTATION THERAPY
     Dosage: UNK
     Route: 048
  2. ACETAMINOPHEN. [Suspect]
     Active Substance: ACETAMINOPHEN
     Indication: ARTHRALGIA
     Dosage: 650 MG TO 1300 MG, QD, PRN
     Route: 048
     Dates: start: 20151104, end: 20151112
  3. ZESTRIL [Concomitant]
     Active Substance: LISINOPRIL
     Indication: FLUID RETENTION
     Dosage: UNK
     Route: 065
  4. HYDROCHLOROTHIAZIDE. [Concomitant]
     Active Substance: HYDROCHLOROTHIAZIDE
     Indication: FLUID RETENTION
     Dosage: UNK
     Route: 065
  5. DIGOXIN. [Concomitant]
     Active Substance: DIGOXIN
     Indication: HEART RATE INCREASED
     Dosage: UNK
     Route: 065
     Dates: start: 1983
  6. ALLOPURINOL. [Concomitant]
     Active Substance: ALLOPURINOL
     Indication: GOUT
     Dosage: UNK
     Route: 065
     Dates: start: 1983

REACTIONS (3)
  - Incorrect dose administered [Recovered/Resolved]
  - Diarrhoea [Not Recovered/Not Resolved]
  - Abdominal pain upper [Not Recovered/Not Resolved]

NARRATIVE: CASE EVENT DATE: 20151104
